FAERS Safety Report 11939899 (Version 1)
Quarter: 2016Q1

REPORT INFORMATION
  Report Type: Spontaneous
  Country: US (occurrence: US)
  Receive Date: 20160122
  Receipt Date: 20160122
  Transmission Date: 20160526
  Serious: No
  Sender: FDA-Public Use
  Company Number: US-MYLANLABS-2015M1016113

PATIENT
  Sex: Female
  Weight: 78.5 kg

DRUGS (2)
  1. PHENYTEK [Suspect]
     Active Substance: PHENYTOIN SODIUM
     Indication: TREMOR
     Dosage: 200 MG, BID
     Route: 048
     Dates: end: 2015
  2. PHENYTEK [Suspect]
     Active Substance: PHENYTOIN SODIUM
     Indication: OFF LABEL USE

REACTIONS (1)
  - Drug ineffective for unapproved indication [Recovered/Resolved]
